FAERS Safety Report 4422996-4 (Version None)
Quarter: 2004Q3

REPORT INFORMATION
  Report Type: 
  Country: None (occurrence: None)
  Receive Date: 20040805
  Receipt Date: 20040729
  Transmission Date: 20050211
  Serious: Yes (Other)
  Sender: FDA-Public Use
  Company Number: HQWYE665530JUL04

PATIENT
  Sex: Male
  Weight: 3.24 kg

DRUGS (1)
  1. EFFEXOR [Suspect]
     Dosage: 225 MG 2X PER 1 DAY, ORAL
     Route: 048

REACTIONS (5)
  - DRUG EXPOSURE DURING PREGNANCY [None]
  - HYPOREFLEXIA [None]
  - HYPOTONIA NEONATAL [None]
  - NEONATAL DISORDER [None]
  - POOR SUCKING REFLEX [None]
